FAERS Safety Report 17851578 (Version 2)
Quarter: 2020Q2

REPORT INFORMATION
  Report Type: Report from Study
  Country: US (occurrence: US)
  Receive Date: 20200602
  Receipt Date: 20200625
  Transmission Date: 20200714
  Serious: Yes (Death, Hospitalization)
  Sender: FDA-Public Use
  Company Number: US-SA-2020SA131841

PATIENT

DRUGS (2)
  1. SARILUMAB [Suspect]
     Active Substance: SARILUMAB
     Indication: COVID-19
     Dosage: 1X, REGN88 OR PLACEBO 200 MG OR 400 MG, SINGLE OR MULTIPLE DOSES
     Route: 042
     Dates: start: 20200422, end: 20200422
  2. SARILUMAB [Suspect]
     Active Substance: SARILUMAB
     Dosage: 1X, REGN88 OR PLACEBO 200 MG OR 400 MG, SINGLE OR MULTIPLE DOSES
     Route: 042
     Dates: start: 20200423, end: 20200423

REACTIONS (5)
  - Urinary tract infection bacterial [Not Recovered/Not Resolved]
  - Pulmonary embolism [Fatal]
  - Shock [Not Recovered/Not Resolved]
  - Transaminases increased [Not Recovered/Not Resolved]
  - Acute kidney injury [Not Recovered/Not Resolved]

NARRATIVE: CASE EVENT DATE: 20200505
